FAERS Safety Report 15260869 (Version 1)
Quarter: 2018Q3

REPORT INFORMATION
  Report Type: Spontaneous
  Country: US (occurrence: US)
  Receive Date: 20180719
  Receipt Date: 20180719
  Transmission Date: 20181010
  Serious: No
  Sender: FDA-Public Use
  Company Number: None

PATIENT
  Age: 47 Year
  Sex: Male

DRUGS (1)
  1. HUMIRA [Suspect]
     Active Substance: ADALIMUMAB
     Indication: PSORIATIC ARTHROPATHY
     Route: 058
     Dates: start: 20180130

REACTIONS (5)
  - Serotonin syndrome [None]
  - Somnolence [None]
  - Mental status changes [None]
  - Drug interaction [None]
  - Fatigue [None]

NARRATIVE: CASE EVENT DATE: 20180515
